FAERS Safety Report 10069463 (Version 1)
Quarter: 2014Q2

REPORT INFORMATION
  Report Type: Spontaneous
  Country: US (occurrence: US)
  Receive Date: 20140410
  Receipt Date: 20140410
  Transmission Date: 20141212
  Serious: Yes (Hospitalization)
  Sender: FDA-Public Use
  Company Number: US-BIOGENIDEC-2014BI031644

PATIENT
  Sex: Male

DRUGS (1)
  1. AVONEX [Suspect]
     Indication: MULTIPLE SCLEROSIS
     Route: 030
     Dates: start: 20040714

REACTIONS (7)
  - Cognitive disorder [Unknown]
  - Muscle atrophy [Unknown]
  - Musculoskeletal disorder [Unknown]
  - Dysphagia [Unknown]
  - Multiple sclerosis [Unknown]
  - Memory impairment [Unknown]
  - Migraine [Unknown]
